FAERS Safety Report 6978382-6 (Version None)
Quarter: 2010Q3

REPORT INFORMATION
  Report Type: 
  Country: None (occurrence: None)
  Receive Date: 20100913
  Receipt Date: 20100907
  Transmission Date: 20110219
  Serious: Yes (Death)
  Sender: FDA-Public Use
  Company Number: PHHY2010JP59421

PATIENT
  Sex: Female

DRUGS (2)
  1. ALISKIREN/AMOLODIPINE BESYLATE/HYDROCHLOROTHIAZIDE [Suspect]
     Dosage: 150 MG, QD
     Route: 048
     Dates: start: 20100108, end: 20100422
  2. OLMETEC [Concomitant]
     Indication: HYPERTENSION
     Dosage: 5 MG
     Route: 048
     Dates: start: 20091224, end: 20100107

REACTIONS (1)
  - MULTIPLE MYELOMA [None]
